FAERS Safety Report 11118195 (Version 1)
Quarter: 2015Q2

REPORT INFORMATION
  Report Type: Spontaneous
  Country: GB (occurrence: GB)
  Receive Date: 20150518
  Receipt Date: 20150518
  Transmission Date: 20150821
  Serious: Yes (Other)
  Sender: FDA-Public Use
  Company Number: GB-TEVA-561884ACC

PATIENT
  Age: 28 Year
  Sex: Female

DRUGS (1)
  1. LORATADINE. [Suspect]
     Active Substance: LORATADINE

REACTIONS (2)
  - Throat tightness [Recovered/Resolved]
  - Speech disorder [Recovered/Resolved]
